FAERS Safety Report 13708362 (Version 3)
Quarter: 2020Q3

REPORT INFORMATION
  Report Type: Report from Study
  Country: US (occurrence: US)
  Receive Date: 20170630
  Receipt Date: 20171114
  Transmission Date: 20201105
  Serious: Yes (Hospitalization)
  Sender: FDA-Public Use
  Company Number: US-JNJFOC-20170627648

PATIENT
  Age: 71 Year
  Sex: Male

DRUGS (18)
  1. ASPIRIN. [Concomitant]
     Active Substance: ASPIRIN
     Route: 048
  2. SYNTHROID [Concomitant]
     Active Substance: LEVOTHYROXINE SODIUM
  3. LYRICA [Concomitant]
     Active Substance: PREGABALIN
     Route: 048
  4. DEXAMETHASONE. [Suspect]
     Active Substance: DEXAMETHASONE
     Indication: PLASMA CELL MYELOMA
     Dosage: 10 MG, (D1,2,8,9,15,16)
     Route: 048
     Dates: start: 20170606
  5. PRED FORTE [Concomitant]
     Active Substance: PREDNISOLONE ACETATE
     Route: 047
  6. MUCINEX [Concomitant]
     Active Substance: GUAIFENESIN
     Route: 048
  7. MYCOSTATIN [Concomitant]
     Active Substance: NYSTATIN
  8. OFLOXACIN. [Concomitant]
     Active Substance: OFLOXACIN
     Route: 047
  9. OXYCONTIN [Concomitant]
     Active Substance: OXYCODONE HYDROCHLORIDE
     Indication: PAIN
     Route: 048
  10. LIDOCAINE. [Concomitant]
     Active Substance: LIDOCAINE
     Indication: PAIN
  11. IBRUTINIB [Suspect]
     Active Substance: IBRUTINIB
     Indication: PLASMA CELL MYELOMA
     Route: 048
     Dates: start: 20170710
  12. IBRUTINIB [Suspect]
     Active Substance: IBRUTINIB
     Indication: PLASMA CELL MYELOMA
     Route: 048
     Dates: start: 20170613, end: 20170622
  13. CARFILZOMIB [Suspect]
     Active Substance: CARFILZOMIB
     Indication: PLASMA CELL MYELOMA
     Dosage: (D 1,2,8,9,15,16)
     Route: 042
     Dates: start: 20170606
  14. COREG [Concomitant]
     Active Substance: CARVEDILOL
     Route: 048
  15. DECADRON [Concomitant]
     Active Substance: DEXAMETHASONE
     Route: 048
  16. VOLTAREN [Concomitant]
     Active Substance: DICLOFENAC SODIUM
     Route: 061
  17. POMALYST [Concomitant]
     Active Substance: POMALIDOMIDE
     Route: 048
  18. PRILOSEC [Concomitant]
     Active Substance: OMEPRAZOLE MAGNESIUM

REACTIONS (1)
  - Colitis [Recovered/Resolved]

NARRATIVE: CASE EVENT DATE: 20170623
